FAERS Safety Report 10984372 (Version 1)
Quarter: 2015Q2

REPORT INFORMATION
  Report Type: Report from Study
  Country: ES (occurrence: ES)
  Receive Date: 20150403
  Receipt Date: 20150403
  Transmission Date: 20150821
  Serious: Yes (Hospitalization)
  Sender: FDA-Public Use
  Company Number: ES-TEVA-551980ISR

PATIENT
  Age: 83 Year
  Sex: Female

DRUGS (14)
  1. MYOCET 50MG POLVO Y PREMEZCLAS CONCENTRADO PARA DISPERSION LIPOSOMICA [Suspect]
     Active Substance: DOXORUBICIN
     Indication: NON-HODGKIN^S LYMPHOMA
     Route: 065
     Dates: start: 20140612, end: 20140612
  2. MABTHERA [Interacting]
     Active Substance: RITUXIMAB
     Indication: NON-HODGKIN^S LYMPHOMA
     Route: 042
     Dates: start: 20140612, end: 20140612
  3. TRANQUIMAZIN [Concomitant]
     Dosage: 1 MILLIGRAM DAILY;
  4. PARAPRES [Concomitant]
     Active Substance: CANDESARTAN CILEXETIL
     Dosage: 1 TABLET DAILY;
  5. GENOXAL [Interacting]
     Active Substance: CYCLOPHOSPHAMIDE
     Indication: NON-HODGKIN^S LYMPHOMA
     Route: 065
     Dates: start: 20140612, end: 20140612
  6. ATROVENT AEROSOL 20 MCG/PLUS [Concomitant]
     Dosage: 40 MICROGRAM DAILY;
     Route: 055
  7. VINCRISTINA [Interacting]
     Active Substance: VINCRISTINE
     Indication: NON-HODGKIN^S LYMPHOMA
     Route: 065
     Dates: start: 20140612, end: 20140612
  8. PREDNISONA [Interacting]
     Active Substance: PREDNISONE
     Indication: NON-HODGKIN^S LYMPHOMA
     Route: 065
     Dates: start: 20140612, end: 20140612
  9. SPRIRIVA [Concomitant]
     Dosage: 1 DOSAGE FORMS DAILY;
     Route: 055
  10. SEPTRIM FORTE [Concomitant]
     Dosage: 2 TABLET DAILY; 1 2 DAYS PER WEEK
  11. CLEXANE 40 [Concomitant]
     Dosage: 40 MILLIGRAM DAILY;
     Route: 058
  12. ZEFFIX 100MG [Concomitant]
     Dosage: 100 MILLIGRAM DAILY; 1 TABLET AT 17:00 HOURS
  13. VALACICLOVIR 500MG [Concomitant]
     Dosage: 1000 MILLIGRAM DAILY; 1 TABLET AT 17:00 HOURS
  14. ACFOL 5MG [Concomitant]
     Dosage: 1 TABLET THE DAYS IN WHICH SEPTRIM FORTE IS NOT ADMINISTRATED

REACTIONS (4)
  - Febrile neutropenia [Recovered/Resolved]
  - Chills [Unknown]
  - Pyrexia [Unknown]
  - Drug interaction [Recovered/Resolved]

NARRATIVE: CASE EVENT DATE: 20140612
